FAERS Safety Report 20489937 (Version 2)
Quarter: 2022Q1

REPORT INFORMATION
  Report Type: Report from Study
  Country: CN (occurrence: CN)
  Receive Date: 20220218
  Receipt Date: 20220331
  Transmission Date: 20220423
  Serious: Yes (Hospitalization)
  Sender: FDA-Public Use
  Company Number: CN-GLAXOSMITHKLINE-CN2022APC026669

PATIENT
  Age: 35 Year
  Sex: Female
  Weight: 45 kg

DRUGS (17)
  1. BELIMUMAB [Suspect]
     Active Substance: BELIMUMAB
     Indication: Systemic lupus erythematosus
     Dosage: 480 MG
     Route: 042
     Dates: start: 20220110
  2. BELIMUMAB [Suspect]
     Active Substance: BELIMUMAB
     Dosage: 480 MG
     Route: 042
     Dates: start: 20220126
  3. BELIMUMAB [Suspect]
     Active Substance: BELIMUMAB
     Dosage: 480 MG
     Route: 042
     Dates: start: 20220216
  4. MYCOPHENOLATE MOFETIL [Suspect]
     Active Substance: MYCOPHENOLATE MOFETIL
     Indication: Systemic lupus erythematosus
     Dosage: 500 MG, QD
     Route: 048
     Dates: start: 20200217
  5. PREDNISOLONE ACETATE [Concomitant]
     Active Substance: PREDNISOLONE ACETATE
     Indication: Systemic lupus erythematosus
     Dosage: 2.5 MG OTHER
     Route: 048
     Dates: start: 20210607
  6. HYDROXYCHLOROQUINE SULFATE [Concomitant]
     Active Substance: HYDROXYCHLOROQUINE SULFATE
     Indication: Systemic lupus erythematosus
     Dosage: 200 MG, BID
     Route: 048
     Dates: start: 20200122
  7. ZHENGQING FENGTONGNING SUSTAINED RELEASE TABLETS [Concomitant]
     Indication: Systemic lupus erythematosus
     Dosage: 120 MG, BID
     Route: 048
     Dates: start: 20220110
  8. CALCIUM CARBONATE\CHOLECALCIFEROL [Concomitant]
     Active Substance: CALCIUM CARBONATE\CHOLECALCIFEROL
     Indication: Osteoporosis
     Dosage: 1 DF, BID
     Route: 048
     Dates: start: 20200217
  9. SODIUM IBANDRONATE INJECTION [Concomitant]
     Indication: Osteoporosis
     Dosage: 2 MG, QD
     Route: 042
     Dates: start: 20211222, end: 20211222
  10. GLUCOSAMINE HYDROCHLORIDE CAPSULES [Concomitant]
     Indication: Arthritis
     Dosage: 7.5 G, BID
     Route: 048
     Dates: start: 20211215
  11. DEXAMETHASONE SODIUM PHOSPHATE [Concomitant]
     Active Substance: DEXAMETHASONE SODIUM PHOSPHATE
     Dosage: 5 MG, QD
     Route: 050
     Dates: start: 20220110, end: 20220110
  12. DEXAMETHASONE SODIUM PHOSPHATE [Concomitant]
     Active Substance: DEXAMETHASONE SODIUM PHOSPHATE
     Dosage: 5 MG, QD
     Route: 050
     Dates: start: 20220126, end: 20220126
  13. DEXAMETHASONE SODIUM PHOSPHATE [Concomitant]
     Active Substance: DEXAMETHASONE SODIUM PHOSPHATE
     Dosage: 30MG, QD
     Route: 050
     Dates: start: 20220216, end: 20220216
  14. LANSOPRAZOLE ENTERIC-COATED TABLETS [Concomitant]
     Dosage: 30 MG, QD
     Route: 048
     Dates: start: 20220110, end: 20220110
  15. LANSOPRAZOLE ENTERIC-COATED TABLETS [Concomitant]
     Dosage: 30 MG, QD
     Route: 048
     Dates: start: 20220126, end: 20220126
  16. LANSOPRAZOLE ENTERIC-COATED TABLETS [Concomitant]
     Dosage: 30 MG, QD
     Route: 048
     Dates: start: 20220216, end: 20220216
  17. TACROLIMUS [Concomitant]
     Active Substance: TACROLIMUS
     Indication: Eczema
     Dosage: OTHER, BID LOCAL EXTERNAL USE
     Dates: start: 20220203

REACTIONS (2)
  - White blood cell count decreased [Recovered/Resolved]
  - Neutrophil count decreased [Recovered/Resolved]

NARRATIVE: CASE EVENT DATE: 20220214
